FAERS Safety Report 5882214-7 (Version None)
Quarter: 2008Q3

REPORT INFORMATION
  Report Type: 
  Country: None (occurrence: None)
  Receive Date: 20080912
  Receipt Date: 20080820
  Transmission Date: 20090109
  Serious: No
  Sender: FDA-Public Use
  Company Number: US-ABBOTT-08P-163-0466245-00

PATIENT
  Sex: Female
  Weight: 69.008 kg

DRUGS (4)
  1. HUMIRA [Suspect]
     Indication: RHEUMATOID ARTHRITIS
     Dosage: USING SYRINGE SINCE 2004 AND CHANGED TO PEN IN 2007
     Route: 058
     Dates: start: 20040101
  2. IBUPROFEN [Concomitant]
     Indication: PAIN
     Route: 048
     Dates: start: 20070101
  3. INEGY [Concomitant]
     Indication: BLOOD CHOLESTEROL INCREASED
     Dosage: 10/20 MG QD
     Route: 048
     Dates: start: 20060101
  4. ACETAMINOPHEN W/ PROPOXYPHENE HCL [Concomitant]
     Indication: PAIN
     Dosage: 100/650 MG
     Route: 048
     Dates: start: 20040101

REACTIONS (4)
  - FALL [None]
  - HAEMORRHAGE [None]
  - LACERATION [None]
  - PUNCTURE SITE HAEMORRHAGE [None]
